FAERS Safety Report 17267929 (Version 1)
Quarter: 2020Q1

REPORT INFORMATION
  Report Type: Spontaneous
  Country: US (occurrence: US)
  Receive Date: 20191220
  Receipt Date: 20191220
  Transmission Date: 20200409
  Serious: Yes (Hospitalization)
  Sender: FDA-Public Use
  Company Number: None

PATIENT
  Sex: Female
  Weight: 29.2 kg

DRUGS (5)
  1. DEXAMETHASONE. [Suspect]
     Active Substance: DEXAMETHASONE
     Dates: end: 20191219
  2. ONCASPAR [Suspect]
     Active Substance: PEGASPARGASE
     Dates: end: 20191125
  3. CYTARABINE. [Suspect]
     Active Substance: CYTARABINE
     Dates: end: 20191122
  4. METHOTREXATE. [Suspect]
     Active Substance: METHOTREXATE
     Dates: end: 20191129
  5. VINCRISTINE SULFATE. [Suspect]
     Active Substance: VINCRISTINE SULFATE
     Dates: end: 20191213

REACTIONS (6)
  - Hepatic failure [None]
  - Weight increased [None]
  - Oedema [None]
  - Urinary retention [None]
  - Abdominal distension [None]
  - Hepatosplenomegaly [None]

NARRATIVE: CASE EVENT DATE: 20191218
